FAERS Safety Report 8790653 (Version 1)
Quarter: 2012Q4

REPORT INFORMATION
  Report Type: Spontaneous
  Country: US (occurrence: None)
  Receive Date: 20120912
  Receipt Date: 20120912
  Transmission Date: 20130627
  Serious: Yes (Other)
  Sender: FDA-Public Use
  Company Number: None

PATIENT
  Age: 43 Year
  Sex: Female

DRUGS (2)
  1. DELSYM [Suspect]
     Indication: COPD
     Dosage: 2 Tbsp. 2 times a day
     Dates: start: 201201
  2. BENADRYL [Suspect]
     Dosage: 2 tabs. 2 times a day
     Dates: start: 201208

REACTIONS (3)
  - Drug screen false positive [None]
  - Legal problem [None]
  - Chronic obstructive pulmonary disease [None]
